FAERS Safety Report 9469360 (Version 3)
Quarter: 2014Q2

REPORT INFORMATION
  Report Type: Report from Study
  Country: CA (occurrence: CA)
  Receive Date: 20130821
  Receipt Date: 20140416
  Transmission Date: 20141212
  Serious: Yes (Other)
  Sender: FDA-Public Use
  Company Number: CA-ROCHE-1192399

PATIENT
  Age: 61 Year
  Sex: Female
  Weight: 65 kg

DRUGS (12)
  1. RITUXAN [Suspect]
     Indication: POLYMYALGIA RHEUMATICA
     Dosage: MOST RECENT DOSE ON 03/JAN/2014
     Route: 042
     Dates: start: 20121220
  2. ACTEMRA [Suspect]
     Indication: RHEUMATOID ARTHRITIS
     Route: 042
     Dates: start: 20131016
  3. SERTRALINE [Concomitant]
  4. AZATHIOPRINE [Concomitant]
  5. CLONAZEPAM [Concomitant]
  6. ATENOLOL [Concomitant]
  7. OXYCONTIN [Concomitant]
  8. ELAVIL (CANADA) [Concomitant]
  9. LIPIDIL [Concomitant]
  10. APO-RISEDRONATE [Concomitant]
  11. ZOPICLONE [Concomitant]
  12. OXYNEO [Concomitant]

REACTIONS (5)
  - Gastric disorder [Recovered/Resolved]
  - Erythema [Recovered/Resolved]
  - Feeling hot [Recovered/Resolved]
  - Paraesthesia [Recovered/Resolved]
  - Weight increased [Unknown]
